FAERS Safety Report 8434211-5 (Version None)
Quarter: 2012Q2

REPORT INFORMATION
  Report Type: 
  Country: None (occurrence: None)
  Receive Date: 20120613
  Receipt Date: 20120609
  Transmission Date: 20120825
  Serious: Yes (Death, Other)
  Sender: FDA-Public Use
  Company Number: PHHY2012US049297

PATIENT
  Age: 45 Year
  Sex: Female

DRUGS (8)
  1. MYCOPHENOLATE MOFETIL [Suspect]
     Indication: IMMUNOSUPPRESSION
  2. VALGANCICLOVIR [Concomitant]
  3. BASILIXIMAB [Suspect]
     Indication: IMMUNOSUPPRESSION
  4. TACROLIMUS [Suspect]
     Indication: IMMUNOSUPPRESSION
  5. PREDNISONE TAB [Suspect]
     Indication: IMMUNOSUPPRESSION
  6. ALEMTUZUMAB [Concomitant]
     Indication: IMMUNOSUPPRESSION
  7. TRIMETHOPRIM [Concomitant]
  8. CLOTRIMAZOLE [Concomitant]
     Indication: IMMUNOSUPPRESSION

REACTIONS (12)
  - VOMITING [None]
  - RHINORRHOEA [None]
  - COCCIDIOIDOMYCOSIS [None]
  - NAUSEA [None]
  - DYSPNOEA [None]
  - URINE OUTPUT DECREASED [None]
  - DIARRHOEA [None]
  - PYREXIA [None]
  - TACHYPNOEA [None]
  - COUGH [None]
  - SINUS CONGESTION [None]
  - RENAL IMPAIRMENT [None]
